FAERS Safety Report 20851958 (Version 4)
Quarter: 2023Q1

REPORT INFORMATION
  Report Type: Other
  Country: GB (occurrence: None)
  Receive Date: 20220520
  Receipt Date: 20230221
  Transmission Date: 20230417
  Serious: No
  Sender: FDA-Public Use
  Company Number: GB-ROCHE-3094853

PATIENT
  Age: 26 Year
  Sex: Female
  Weight: 54 kg

DRUGS (18)
  1. OCRELIZUMAB [Suspect]
     Active Substance: OCRELIZUMAB
     Indication: Relapsing-remitting multiple sclerosis
     Dosage: SUBSEQUENT DOSE RECEIVED ON 24/JUL/2019
     Route: 042
     Dates: start: 20190710
  2. OCRELIZUMAB [Suspect]
     Active Substance: OCRELIZUMAB
     Dosage: SUBSEQUENT DOSE RECEIVED ON 20/NOV/2020, 30/JUL/2021, 26/APR/2022
     Route: 042
     Dates: start: 20200306, end: 20200306
  3. METHYLPREDNISOLONE [Concomitant]
     Active Substance: METHYLPREDNISOLONE
     Dosage: 24-JUL-2019,  26-APR-2022, 06-MAR-2020, 20-NOV-2020, 30-JUL-2021
     Route: 042
     Dates: start: 20190710, end: 20190710
  4. CHLORPHENIRAMINE MALEATE [Concomitant]
     Active Substance: CHLORPHENIRAMINE MALEATE
     Dosage: 26-APR-2022/26-APR-2022?06-MAR-2020/06-MAR-2020?24-JUL-2019/24-JUL-2019?10-JUL-2019/10-JUL-2019?10-J
     Route: 042
     Dates: start: 20201120, end: 20201120
  5. ACETAMINOPHEN [Concomitant]
     Active Substance: ACETAMINOPHEN
     Dosage: 20-NOV-2020/20-NOV-2020?24-JUL-2019/24-JUL-2019?26-APR-2022/26-APR-2022?06-MAR-2020/06-MAR-2020
     Route: 048
     Dates: start: 20190710, end: 20190710
  6. ACETAMINOPHEN [Concomitant]
     Active Substance: ACETAMINOPHEN
     Route: 048
     Dates: start: 20210730, end: 20210730
  7. VITAMIN D3 [Concomitant]
     Active Substance: CHOLECALCIFEROL
  8. GABAPENTIN [Concomitant]
     Active Substance: GABAPENTIN
     Dates: end: 202104
  9. GABAPENTIN [Concomitant]
     Active Substance: GABAPENTIN
     Route: 048
     Dates: start: 202104
  10. FEXOFENADINE [Concomitant]
     Active Substance: FEXOFENADINE HYDROCHLORIDE
  11. MELATONIN [Concomitant]
     Active Substance: MELATONIN
  12. NAPROXEN [Concomitant]
     Active Substance: NAPROXEN
     Route: 048
     Dates: start: 20210619, end: 202107
  13. NAPROXEN [Concomitant]
     Active Substance: NAPROXEN
     Route: 048
  14. ASTRAZENECA COVID-19 VACCINE [Concomitant]
     Active Substance: AZD-1222
     Indication: Prophylaxis
     Route: 030
     Dates: start: 20210519, end: 20210519
  15. CODEINE [Concomitant]
     Active Substance: CODEINE
     Dates: start: 20200619
  16. MODERNA COVID-19 VACCINE [Concomitant]
     Active Substance: ELASOMERAN
     Indication: Prophylaxis
     Route: 030
     Dates: start: 20220401, end: 20220401
  17. SOTROVIMAB [Concomitant]
     Active Substance: SOTROVIMAB
     Route: 042
     Dates: start: 202201
  18. CILIQUE [Concomitant]
     Indication: Prophylaxis
     Route: 048
     Dates: start: 2020

REACTIONS (1)
  - COVID-19 [Recovered/Resolved]

NARRATIVE: CASE EVENT DATE: 20220101
